FAERS Safety Report 20714002 (Version 1)
Quarter: 2022Q2

REPORT INFORMATION
  Report Type: Spontaneous
  Country: US (occurrence: US)
  Receive Date: 20220415
  Receipt Date: 20220415
  Transmission Date: 20220721
  Serious: Yes (Life-Threatening, Hospitalization, Other)
  Sender: FDA-Public Use
  Company Number: US-MLMSERVICE-20220405-3482796-2

PATIENT
  Sex: Male

DRUGS (3)
  1. CYCLOPHOSPHAMIDE [Suspect]
     Active Substance: CYCLOPHOSPHAMIDE
     Indication: Hodgkin^s disease
     Dosage: UNKNOWN
     Route: 065
  2. DOXORUBICIN [Suspect]
     Active Substance: DOXORUBICIN
     Indication: Hodgkin^s disease
     Route: 065
  3. IFOSFAMIDE [Suspect]
     Active Substance: IFOSFAMIDE
     Indication: Hodgkin^s disease
     Dosage: UNKNOWN
     Route: 065

REACTIONS (2)
  - Osteosarcoma [Recovered/Resolved]
  - Second primary malignancy [Recovered/Resolved]
